FAERS Safety Report 9367671 (Version 2)
Quarter: 2013Q3

REPORT INFORMATION
  Report Type: Report from Study
  Country: US (occurrence: US)
  Receive Date: 20130625
  Receipt Date: 20130918
  Transmission Date: 20140515
  Serious: Yes (Hospitalization, Other)
  Sender: FDA-Public Use
  Company Number: US-GILEAD-2013-0077314

PATIENT
  Age: 43 Year
  Sex: Female

DRUGS (15)
  1. EMTRICITABINE/RILPIVIRINE/TENOFOVIR DF [Suspect]
     Indication: HIV INFECTION
     Dosage: 1 DF, QD
     Route: 048
     Dates: start: 20110608, end: 20130408
  2. METOPROLOL [Concomitant]
     Indication: HYPERTENSION
     Dosage: UNK
     Route: 048
     Dates: start: 20091109
  3. ENALAPRIL [Concomitant]
     Indication: HYPERTENSION
     Dosage: UNK
     Route: 048
     Dates: start: 20091109
  4. CLONIDINE [Concomitant]
     Indication: HYPERTENSION
     Dosage: UNK
     Route: 048
     Dates: start: 20091109
  5. LEVOXYL [Concomitant]
     Indication: HYPOTHYROIDISM
     Dosage: UNK
     Route: 048
     Dates: start: 20090601
  6. ABILIFY [Concomitant]
     Indication: BIPOLAR DISORDER
     Dosage: UNK
     Route: 048
     Dates: start: 20060601, end: 20130108
  7. LITHIUM                            /00033702/ [Concomitant]
     Indication: BIPOLAR DISORDER
     Dosage: UNK
     Route: 048
     Dates: start: 20060601, end: 20130108
  8. VITAMIN C                          /00008001/ [Concomitant]
     Indication: SUPPLEMENTATION THERAPY
     Dosage: UNK
     Route: 048
     Dates: start: 20100101
  9. DEPO PROVERA [Concomitant]
     Indication: CONTRACEPTION
     Dosage: UNK
     Route: 030
     Dates: start: 200601
  10. COGENTIN [Concomitant]
     Indication: DYSKINESIA
     Dosage: UNK
     Route: 048
     Dates: start: 20111101
  11. DOXEPIN [Concomitant]
     Indication: INSOMNIA
     Dosage: UNK
     Dates: start: 20120416, end: 20130108
  12. IRON [Concomitant]
     Indication: SUPPLEMENTATION THERAPY
     Dosage: UNK
     Route: 048
     Dates: start: 20120507
  13. MUPIROCIN [Concomitant]
     Indication: FOLLICULITIS
     Dosage: UNK
     Route: 061
     Dates: start: 20121213
  14. DOXYCYCLINE [Concomitant]
     Indication: FOLLICULITIS
     Dosage: UNK
     Route: 048
     Dates: start: 20121213
  15. HIBICLENS [Concomitant]
     Indication: FOLLICULITIS
     Dosage: UNK
     Route: 061
     Dates: start: 20121213

REACTIONS (1)
  - Bipolar I disorder [Recovered/Resolved]
